FAERS Safety Report 21144129 (Version 4)
Quarter: 2023Q4

REPORT INFORMATION
  Report Type: Report from Study
  Country: CA (occurrence: CA)
  Receive Date: 20220728
  Receipt Date: 20231031
  Transmission Date: 20240110
  Serious: Yes (Hospitalization, Other)
  Sender: FDA-Public Use
  Company Number: CA-ABBVIE-22K-028-4475929-00

PATIENT
  Sex: Female

DRUGS (4)
  1. HUMIRA [Suspect]
     Active Substance: ADALIMUMAB
     Indication: Pyoderma gangrenosum
     Dosage: FORM STRENGTH: 40MG
     Route: 058
  2. HUMIRA [Suspect]
     Active Substance: ADALIMUMAB
     Indication: Pyoderma gangrenosum
     Dosage: FORM STRENGTH: 40MG
     Route: 058
     Dates: start: 20211021
  3. HUMIRA [Suspect]
     Active Substance: ADALIMUMAB
     Dosage: FORM STRENGTH: 40MG
     Route: 058
     Dates: start: 2022
  4. PREDNISONE [Concomitant]
     Active Substance: PREDNISONE
     Indication: Product used for unknown indication
     Route: 065

REACTIONS (10)
  - Bacterial disease carrier [Unknown]
  - Localised infection [Unknown]
  - Diarrhoea [Recovering/Resolving]
  - Pyoderma gangrenosum [Unknown]
  - Skin graft [Unknown]
  - Cellulitis staphylococcal [Unknown]
  - Wound infection bacterial [Unknown]
  - Off label use [Unknown]
  - Hypokalaemia [Unknown]
  - Wound infection pseudomonas [Unknown]
